FAERS Safety Report 5391436-3 (Version None)
Quarter: 2007Q3

REPORT INFORMATION
  Report Type: 
  Country: None (occurrence: None)
  Receive Date: 20070719
  Receipt Date: 20070711
  Transmission Date: 20080115
  Serious: Yes (Life-Threatening)
  Sender: FDA-Public Use
  Company Number: B0479671A

PATIENT
  Age: 39 Year
  Sex: Female

DRUGS (1)
  1. NIQUITIN [Suspect]
     Route: 062
     Dates: start: 20070420, end: 20070429

REACTIONS (4)
  - FEELING ABNORMAL [None]
  - HEADACHE [None]
  - INSOMNIA [None]
  - SUICIDAL IDEATION [None]
